FAERS Safety Report 9889689 (Version 4)
Quarter: 2014Q1

REPORT INFORMATION
  Report Type: Spontaneous
  Country: JP (occurrence: JP)
  Receive Date: 20140211
  Receipt Date: 20140312
  Transmission Date: 20141002
  Serious: Yes (Other)
  Sender: FDA-Public Use
  Company Number: JP-PFIZER INC-2014035887

PATIENT
  Age: 69 Year
  Sex: Male

DRUGS (15)
  1. LYRICA [Suspect]
     Indication: PAIN
     Dosage: 75 MG, 2X/DAY, AT MORNING AND EVENING
     Route: 048
     Dates: start: 20110328, end: 20110330
  2. LYRICA [Suspect]
     Dosage: 75 MG, 1X/DAY AT EVENING
     Route: 048
     Dates: start: 20110331, end: 20110415
  3. LYRICA [Suspect]
     Dosage: 75 MG, 2X/DAY, AT MORNING AND EVENING
     Route: 048
     Dates: start: 20110416, end: 20110526
  4. LYRICA [Suspect]
     Dosage: 75 MG, 1X/DAY AT EVENING
     Route: 048
     Dates: start: 20110527, end: 20110827
  5. LYRICA [Suspect]
     Dosage: 150 MG, DAILY
     Route: 048
     Dates: start: 20110828, end: 20110830
  6. LYRICA [Suspect]
     Dosage: 75 MG, DAILY
     Route: 048
     Dates: start: 20110831, end: 20120415
  7. LYRICA [Suspect]
     Dosage: 75 MG, 2X/DAY
     Route: 048
     Dates: start: 20120416, end: 20120526
  8. LYRICA [Suspect]
     Dosage: 75 MG, 1X/DAY
     Route: 048
     Dates: start: 20120527, end: 20120731
  9. LYRICA [Suspect]
     Dosage: 75 MG, 2X/DAY AT MORNING AND EVENING
     Route: 048
     Dates: start: 20120801, end: 20120819
  10. LYRICA [Suspect]
     Dosage: 75 MG, 1X/DAY AT EVENING
     Route: 048
     Dates: start: 20120820, end: 20130106
  11. LYRICA [Suspect]
     Dosage: 75 MG, 2X/DAY AT MORNING AND EVENING
     Route: 048
     Dates: start: 20130107, end: 20131021
  12. LYRICA [Suspect]
     Dosage: 75 MG, 1X/DAY AT EVENING
     Route: 048
     Dates: start: 20131022
  13. MYONAL [Suspect]
     Dosage: 150 MG, DAILY
     Route: 048
     Dates: start: 20110223
  14. SOLETON [Suspect]
     Dosage: 240 MG, DAILY
     Route: 048
     Dates: start: 20110302
  15. MUCOSTA [Suspect]
     Dosage: 300 MG, DAILY
     Route: 048
     Dates: start: 20110302

REACTIONS (2)
  - Blood glucose increased [Recovered/Resolved]
  - Weight decreased [Recovered/Resolved]
